FAERS Safety Report 7401821-3 (Version None)
Quarter: 2011Q1

REPORT INFORMATION
  Report Type: 
  Country: None (occurrence: None)
  Receive Date: 20110301
  Receipt Date: 20100721
  Transmission Date: 20110831
  Serious: Yes (Hospitalization)
  Sender: FDA-Public Use
  Company Number: US-JNJFOC-20100607960

PATIENT
  Age: 9 Year
  Sex: Male
  Weight: 29.4838 kg

DRUGS (4)
  1. CHILDREN'S TYLENOL SUSPENSION [Suspect]
     Indication: PYREXIA
     Dosage: 1 IN 1 TOTAL, ORAL
     Route: 048
  2. CHILDREN'S MOTRIN [Suspect]
     Indication: PYREXIA
     Dosage: 150 MG, 1 IN 1 TOTAL, ORAL
     Route: 048
     Dates: start: 20100331, end: 20100331
  3. CHILDREN'S MOTRIN [Suspect]
     Indication: OROPHARYNGEAL PAIN
     Dosage: 150 MG, 1 IN 1 TOTAL, ORAL
     Route: 048
     Dates: start: 20100331, end: 20100331
  4. CHILDREN'S MOTRIN [Suspect]
     Indication: SINUSITIS
     Dosage: 150 MG, 1 IN 1 TOTAL, ORAL
     Route: 048
     Dates: start: 20100331, end: 20100331

REACTIONS (2)
  - PRODUCT QUALITY ISSUE [None]
  - HYPERSENSITIVITY [None]
